FAERS Safety Report 8504301-7 (Version None)
Quarter: 2012Q3

REPORT INFORMATION
  Report Type: 
  Country: None (occurrence: None)
  Receive Date: 20120711
  Receipt Date: 20120702
  Transmission Date: 20120928
  Serious: Yes (Hospitalization)
  Sender: FDA-Public Use
  Company Number: US-ASTRAZENECA-2012SE44735

PATIENT
  Age: 53 Year
  Sex: Male
  Weight: 90.7 kg

DRUGS (7)
  1. ANTI PHLEGM MEDICATION IN INHALER [Concomitant]
  2. SYMBICORT [Suspect]
     Indication: EMPHYSEMA
     Dosage: 160/ 4.5, 2 PUFFS TWO TIMES A DAY
     Route: 055
     Dates: start: 20090101
  3. LISINOPRIL [Concomitant]
  4. ATENOLOL [Concomitant]
  5. ALBUTEROL [Concomitant]
  6. LACTULOSE [Suspect]
  7. VENTOLIN [Concomitant]
     Dosage: AS REQUIRED

REACTIONS (7)
  - ABDOMINAL DISTENSION [None]
  - DYSPNOEA [None]
  - ABDOMINAL PAIN [None]
  - BLOOD SODIUM DECREASED [None]
  - PAINFUL DEFAECATION [None]
  - DIZZINESS [None]
  - WEIGHT INCREASED [None]
